FAERS Safety Report 5515957-5 (Version None)
Quarter: 2007Q4

REPORT INFORMATION
  Report Type: 
  Country: None (occurrence: None)
  Receive Date: 20071114
  Receipt Date: 20070717
  Transmission Date: 20080405
  Serious: No
  Sender: FDA-Public Use
  Company Number: A0496387A

PATIENT
  Age: 47 Year
  Sex: Male

DRUGS (7)
  1. COMMIT [Suspect]
     Dates: start: 20040122
  2. GLUCOPHAGE [Concomitant]
  3. CLONAPAM [Concomitant]
  4. RISPERDAL [Concomitant]
  5. NEXIUM [Concomitant]
  6. ASPIRIN [Concomitant]
  7. ALLEGRA [Concomitant]

REACTIONS (4)
  - CHEST PAIN [None]
  - HEART RATE INCREASED [None]
  - HYPERHIDROSIS [None]
  - THROAT IRRITATION [None]
